FAERS Safety Report 19061072 (Version 1)
Quarter: 2021Q1

REPORT INFORMATION
  Report Type: Spontaneous
  Country: US (occurrence: US)
  Receive Date: 20210326
  Receipt Date: 20210326
  Transmission Date: 20210420
  Serious: No
  Sender: FDA-Public Use
  Company Number: US-CADILA HEALTHCARE LIMITED-US-ZYDUS-058256

PATIENT
  Sex: Female

DRUGS (3)
  1. ATENOLOL 25 MILLIGRAM TABLETTER [Suspect]
     Active Substance: ATENOLOL
     Indication: HYPERTENSION
     Dosage: 25 MILLIGRAM, QD
     Route: 048
     Dates: start: 202008
  2. ATENOLOL 25 MILLIGRAM TABLETTER [Suspect]
     Active Substance: ATENOLOL
     Indication: CARDIAC DISORDER
  3. ATENOLOL 25 MILLIGRAM TABLETTER [Suspect]
     Active Substance: ATENOLOL
     Indication: PALPITATIONS

REACTIONS (2)
  - Breast pain [Not Recovered/Not Resolved]
  - Product use in unapproved indication [Not Recovered/Not Resolved]

NARRATIVE: CASE EVENT DATE: 2020
